FAERS Safety Report 4959624-5 (Version None)
Quarter: 2006Q1

REPORT INFORMATION
  Report Type: 
  Country: None (occurrence: None)
  Receive Date: 20060331
  Receipt Date: 20060301
  Transmission Date: 20060701
  Serious: Yes (Life-Threatening, Hospitalization)
  Sender: FDA-Public Use
  Company Number: IL-ROCHE-438483

PATIENT
  Age: 68 Year
  Sex: Female

DRUGS (9)
  1. PEG-INTERFERON A-2A (RO 25-8310) [Suspect]
     Route: 058
     Dates: start: 20050704, end: 20060122
  2. RIBAVIRIN [Suspect]
     Route: 048
     Dates: start: 20050704, end: 20050818
  3. TRITACE [Concomitant]
  4. LOSEC [Concomitant]
  5. PROSCAR [Concomitant]
  6. FUSID [Concomitant]
  7. CIPRAMIL [Concomitant]
  8. CALTRATE [Concomitant]
  9. VITAMIN D3 [Concomitant]
     Dosage: REPORTED AS VITAMIN ALPHA D3

REACTIONS (7)
  - CELLULITIS [None]
  - CONJUNCTIVITIS INFECTIVE [None]
  - DYSPHAGIA [None]
  - KLEBSIELLA INFECTION [None]
  - NEUTROPENIC SEPSIS [None]
  - OESOPHAGEAL CANDIDIASIS [None]
  - PSEUDOMONAS INFECTION [None]
